FAERS Safety Report 10860873 (Version 1)
Quarter: 2015Q1

REPORT INFORMATION
  Report Type: Spontaneous
  Country: CA (occurrence: CA)
  Receive Date: 20150224
  Receipt Date: 20150224
  Transmission Date: 20150721
  Serious: Yes (Other)
  Sender: FDA-Public Use
  Company Number: CA-CIPLA LTD.-2015CA01316

PATIENT
  Age: 50 Year
  Sex: Male

DRUGS (2)
  1. GEMCITABINE [Suspect]
     Active Substance: GEMCITABINE\GEMCITABINE HYDROCHLORIDE
     Indication: SMALL INTESTINE CARCINOMA
     Dosage: 1000 MG/M2, WEEKLY ADJUVANT
  2. GEMCITABINE [Suspect]
     Active Substance: GEMCITABINE\GEMCITABINE HYDROCHLORIDE
     Indication: PROPHYLACTIC CHEMOTHERAPY
     Dosage: 40 MG/M2, TWICE WEEKLY

REACTIONS (2)
  - Myopathy [Recovered/Resolved]
  - Myositis [Recovered/Resolved]
